FAERS Safety Report 21963056 (Version 1)
Quarter: 2023Q1

REPORT INFORMATION
  Report Type: Spontaneous
  Country: US (occurrence: US)
  Receive Date: 20230207
  Receipt Date: 20230207
  Transmission Date: 20230418
  Serious: No
  Sender: FDA-Public Use
  Company Number: US-TAKEDA-2023TUS013093

PATIENT
  Sex: Female
  Weight: 58 kg

DRUGS (1)
  1. DEXILANT [Suspect]
     Active Substance: DEXLANSOPRAZOLE
     Indication: Dyspepsia
     Dosage: 60 MILLIGRAM, QD
     Route: 048

REACTIONS (3)
  - Incorrect product administration duration [Unknown]
  - Ulcer [Unknown]
  - Extra dose administered [Unknown]
